FAERS Safety Report 23341602 (Version 1)
Quarter: 2023Q4

REPORT INFORMATION
  Report Type: Report from Study
  Country: BR (occurrence: BR)
  Receive Date: 20231227
  Receipt Date: 20231227
  Transmission Date: 20240110
  Serious: Yes (Hospitalization, Other)
  Sender: FDA-Public Use
  Company Number: BR-002147023-NVSC2023BR272578

PATIENT
  Sex: Female

DRUGS (2)
  1. KISQALI [Suspect]
     Active Substance: RIBOCICLIB
     Indication: Breast cancer
     Dosage: UNK
     Route: 065
  2. LETROZOLE [Suspect]
     Active Substance: LETROZOLE
     Indication: Breast cancer
     Dosage: UNK
     Route: 065

REACTIONS (7)
  - Thrombosis [Recovered/Resolved]
  - Disease progression [Unknown]
  - Decreased immune responsiveness [Recovered/Resolved]
  - Renal disorder [Recovered/Resolved]
  - Herpes zoster [Unknown]
  - Infection [Recovered/Resolved]
  - Peripheral swelling [Not Recovered/Not Resolved]
